FAERS Safety Report 16506622 (Version 1)
Quarter: 2019Q3

REPORT INFORMATION
  Report Type: Report from Study
  Country: US (occurrence: US)
  Receive Date: 20190701
  Receipt Date: 20190701
  Transmission Date: 20191004
  Serious: Yes (Death, Hospitalization)
  Sender: FDA-Public Use
  Company Number: US-BAYER-2019-124340

PATIENT
  Age: 81 Year
  Sex: Male
  Weight: 77.1 kg

DRUGS (4)
  1. ADEMPAS [Suspect]
     Active Substance: RIOCIGUAT
     Indication: PULMONARY ARTERIAL HYPERTENSION
     Dosage: 2.5 MG, TID
     Route: 048
  2. ADEMPAS [Suspect]
     Active Substance: RIOCIGUAT
     Indication: PULMONARY ARTERIAL HYPERTENSION
     Dosage: UNK
     Dates: start: 20131113
  3. LETAIRIS [Concomitant]
     Active Substance: AMBRISENTAN
     Dosage: UNK
  4. TYVASO [Concomitant]
     Active Substance: TREPROSTINIL
     Dosage: UNK

REACTIONS (1)
  - Death [Fatal]

NARRATIVE: CASE EVENT DATE: 20190620
